FAERS Safety Report 10196448 (Version 1)
Quarter: 2014Q2

REPORT INFORMATION
  Report Type: Spontaneous
  Country: US (occurrence: US)
  Receive Date: 20140527
  Receipt Date: 20140527
  Transmission Date: 20141212
  Serious: No
  Sender: FDA-Public Use
  Company Number: US-BAYER-2014-076458

PATIENT
  Sex: Female

DRUGS (1)
  1. ADEMPAS [Suspect]
     Dosage: 0.5 MG, TID
     Route: 048
     Dates: start: 20140408

REACTIONS (1)
  - Accidental exposure to product [None]
